FAERS Safety Report 7034204-9 (Version None)
Quarter: 2010Q4

REPORT INFORMATION
  Report Type: 
  Country: None (occurrence: None)
  Receive Date: 20101008
  Receipt Date: 20100930
  Transmission Date: 20110411
  Serious: Yes (Death)
  Sender: FDA-Public Use
  Company Number: US-BIOGENIDEC-2010BI033914

PATIENT
  Age: 42 Year
  Sex: Female

DRUGS (2)
  1. TYSABRI [Suspect]
     Indication: MULTIPLE SCLEROSIS
     Route: 042
     Dates: start: 20080325, end: 20080722
  2. TYSABRI [Suspect]
     Route: 042
     Dates: start: 20090707, end: 20100824

REACTIONS (1)
  - ROAD TRAFFIC ACCIDENT [None]
